FAERS Safety Report 7901185 (Version 2)
Quarter: 2013Q1

REPORT INFORMATION
  Report Type: Spontaneous
  Country: US (occurrence: None)
  Receive Date: 20110324
  Receipt Date: 20121009
  Transmission Date: 20140127
  Serious: Yes (Other)
  Sender: FDA-Public Use
  Company Number: 2011MA002530

PATIENT
  Sex: Female

DRUGS (34)
  1. METOCLOPRAMIDE [Suspect]
     Indication: PRODUCT USED FOR UNKNOWN INDICATION
     Dosage: PO
     Dates: start: 20100402, end: 201008
  2. FLUOXETINE [Concomitant]
  3. ARICEPT [Concomitant]
  4. COZAAR [Concomitant]
  5. GLYBURIDE [Concomitant]
  6. LUNESTA [Concomitant]
  7. PRIMIDONE [Concomitant]
  8. ARIMIDEX [Concomitant]
  9. METHAZOLAMIDE [Concomitant]
  10. TEMAZEPAM [Concomitant]
  11. DICLOXACILL [Concomitant]
  12. HYDROCODONE [Concomitant]
  13. METFORMIN [Concomitant]
  14. CLINDAMYCNI [Concomitant]
  15. NAPROXEN [Concomitant]
  16. PANTOPRAZOLE [Concomitant]
  17. LACTULOSE [Concomitant]
  18. DICLOFENAC [Concomitant]
  19. AMOXICILLIN [Concomitant]
  20. CARBIDOPA-LEVODOPA [Concomitant]
  21. SELEGILINE [Concomitant]
  22. NASONEX [Concomitant]
  23. LORAZEPAM [Concomitant]
  24. MIRAPEX [Concomitant]
  25. FUROSEMIDE [Concomitant]
  26. OXYCODONE-APAP [Concomitant]
  27. ATENOLOL [Concomitant]
  28. ALPRAZOLAM [Concomitant]
  29. VYTORIN [Concomitant]
  30. CLARITHROMYCIN [Concomitant]
  31. NEXIUM [Concomitant]
  32. PROPOXYPHENE [Concomitant]
  33. OMEPRAZOLE [Concomitant]
  34. ACYCLOVIR [Concomitant]

REACTIONS (8)
  - Tardive dyskinesia [None]
  - Dystonia [None]
  - Akathisia [None]
  - Extrapyramidal disorder [None]
  - Tremor [None]
  - Economic problem [None]
  - Emotional disorder [None]
  - Dyskinesia [None]
